FAERS Safety Report 9699715 (Version 2)
Quarter: 2014Q4

REPORT INFORMATION
  Report Type: Spontaneous
  Country: US (occurrence: US)
  Receive Date: 20131120
  Receipt Date: 20141219
  Transmission Date: 20150529
  Serious: No
  Sender: FDA-Public Use
  Company Number: US-TEVA-373040USA

PATIENT
  Age: 26 Year
  Sex: Female
  Weight: 52.21 kg

DRUGS (1)
  1. PARAGARD T380A [Suspect]
     Active Substance: COPPER
     Indication: CONTRACEPTION
     Route: 015
     Dates: start: 20120118

REACTIONS (3)
  - Coital bleeding [Recovered/Resolved]
  - Metrorrhagia [Recovered/Resolved]
  - Uterine spasm [Not Recovered/Not Resolved]

NARRATIVE: CASE EVENT DATE: 201201
